FAERS Safety Report 8150051-9 (Version None)
Quarter: 2012Q1

REPORT INFORMATION
  Report Type: 
  Country: None (occurrence: None)
  Receive Date: 20120219
  Receipt Date: 20120210
  Transmission Date: 20120608
  Serious: Yes (Hospitalization)
  Sender: FDA-Public Use
  Company Number: AU-BRISTOL-MYERS SQUIBB COMPANY-16092819

PATIENT
  Age: 69 Year
  Sex: Male

DRUGS (15)
  1. GEMCITABINE [Suspect]
     Indication: NON-SMALL CELL LUNG CANCER
     Dosage: INTERRUPTED ON 15SEP11.(01JUL-15SEP11:77DAYS) RESTARTED ON 22SEP11.
     Route: 065
     Dates: start: 20110701
  2. MAXOLON [Concomitant]
  3. OMEPRAZOLE [Concomitant]
  4. LACTULOSE [Concomitant]
  5. ONDANSETRON [Concomitant]
  6. CISPLATIN [Suspect]
     Indication: NON-SMALL CELL LUNG CANCER
     Dosage: INTERRUPTED ON 15SEP11.(01JUL-15SEP11:77DAYS) RESTARTED ON 22SEP11.
     Route: 065
     Dates: start: 20110701
  7. COLOXYL + SENNA [Concomitant]
     Dates: end: 20110915
  8. DIGOXIN [Concomitant]
  9. METOPROLOL TARTRATE [Concomitant]
     Dates: start: 20110913
  10. EFFEXOR XR [Concomitant]
  11. PERINDOPRIL [Concomitant]
     Dates: start: 20110915
  12. MAGNESIUM [Concomitant]
  13. WARFARIN SODIUM [Concomitant]
     Dates: end: 20110918
  14. ACETAMINOPHEN [Concomitant]
  15. OXYCODONE HCL [Concomitant]

REACTIONS (8)
  - ACQUIRED DIAPHRAGMATIC EVENTRATION [None]
  - DYSPNOEA [None]
  - ATELECTASIS [None]
  - PRESBYOESOPHAGUS [None]
  - PLATELET COUNT DECREASED [None]
  - ANAEMIA [None]
  - VOMITING [None]
  - ATRIAL FIBRILLATION [None]
